FAERS Safety Report 16729054 (Version 1)
Quarter: 2019Q3

REPORT INFORMATION
  Report Type: Spontaneous
  Country: ES (occurrence: ES)
  Receive Date: 20190822
  Receipt Date: 20190822
  Transmission Date: 20191005
  Serious: Yes (Hospitalization, Other)
  Sender: FDA-Public Use
  Company Number: ES-APOTEX-2019AP020610

PATIENT
  Age: 74 Year
  Sex: Female

DRUGS (2)
  1. ACENOCUMAROL [Concomitant]
     Active Substance: ACENOCOUMAROL
     Indication: ATRIAL FIBRILLATION
     Dosage: UNK
     Route: 065
  2. HYDROCHLOROTHIAZIDE. [Suspect]
     Active Substance: HYDROCHLOROTHIAZIDE
     Indication: DRUG PROVOCATION TEST
     Dosage: UNK UNK, SINGLE
     Route: 065

REACTIONS (2)
  - Idiosyncratic drug reaction [Recovered/Resolved]
  - Acute pulmonary oedema [Recovered/Resolved]
